FAERS Safety Report 8673454 (Version 4)
Quarter: 2012Q4

REPORT INFORMATION
  Report Type: 
  Country: GB (occurrence: GB)
  Receive Date: 20120719
  Receipt Date: 20121005
  Transmission Date: 20130627
  Serious: Yes (Hospitalization, Other)
  Sender: FDA-Public Use
  Company Number: PHFR2012GB003819

PATIENT
  Age: 46 Year
  Sex: Female

DRUGS (11)
  1. CLOZARIL [Suspect]
     Indication: SCHIZOPHRENIA
     Dosage: 40 DF, (mixed tablet) which included Clozaril
     Route: 048
     Dates: start: 20100428
  2. CLOZARIL [Suspect]
     Dosage: 25 mg x 14 tablets
     Route: 048
     Dates: end: 20120628
  3. CLOZARIL [Suspect]
     Dosage: 100 mg mane and 225 mg nocte
     Route: 048
  4. VALPROIC ACID [Suspect]
     Dosage: 500 mg x 42 tablets
  5. ZOCOR [Suspect]
     Dosage: 40 mixed tablets
     Route: 048
  6. FOLIC ACID [Suspect]
     Dosage: 5 mg x 14 tablets
     Route: 048
  7. HYOSCINE HYDROBROMIDE [Concomitant]
     Dosage: 300 mg, BID
     Route: 048
  8. DEPAKOTE [Concomitant]
     Dosage: 500 mg mane
     Route: 048
  9. DEPAKOTE [Concomitant]
     Dosage: 1000 mg nocte
     Route: 048
  10. SYMBICORT [Concomitant]
     Dosage: 2 DF, BID (2 puffs bd)
  11. SIMVASTATIN [Concomitant]
     Dosage: 30 mg nocte
     Route: 048

REACTIONS (7)
  - Suicidal behaviour [Recovered/Resolved]
  - Overdose [Recovered/Resolved]
  - Pneumonia [Unknown]
  - Blood creatine phosphokinase increased [Unknown]
  - White blood cell count increased [Unknown]
  - Blood urea decreased [Unknown]
  - Neutrophil count increased [Unknown]
